FAERS Safety Report 8992970 (Version 3)
Quarter: 2014Q1

REPORT INFORMATION
  Report Type: Report from Study
  Country: JP (occurrence: JP)
  Receive Date: 20130102
  Receipt Date: 20140117
  Transmission Date: 20141002
  Serious: Yes (Hospitalization, Disabling, Other)
  Sender: FDA-Public Use
  Company Number: JP-JNJFOC-20120104825

PATIENT
  Age: 38 Year
  Sex: Male
  Weight: 63 kg

DRUGS (33)
  1. PREZISTA [Suspect]
     Indication: HIV INFECTION
     Route: 048
     Dates: start: 20110426
  2. PREZISTA [Suspect]
     Indication: HIV INFECTION
     Route: 048
     Dates: start: 20090519, end: 20110425
  3. TRUVADA [Suspect]
     Indication: HIV INFECTION
     Route: 048
     Dates: start: 20090127
  4. NORVIR [Suspect]
     Indication: HIV INFECTION
     Route: 048
     Dates: start: 20090519, end: 20110711
  5. NORVIR [Suspect]
     Indication: HIV INFECTION
     Route: 048
     Dates: start: 20110712
  6. CROSS EIGHT M [Concomitant]
     Indication: HAEMARTHROSIS
     Route: 042
     Dates: start: 20100401, end: 20110630
  7. CROSS EIGHT M [Concomitant]
     Indication: HAEMARTHROSIS
     Route: 042
     Dates: start: 20111116, end: 20111130
  8. CROSS EIGHT M [Concomitant]
     Indication: HAEMARTHROSIS
     Route: 042
     Dates: start: 20120401, end: 20121026
  9. CROSS EIGHT M [Concomitant]
     Indication: HAEMARTHROSIS
     Route: 042
     Dates: start: 20111201
  10. CROSS EIGHT M [Concomitant]
     Indication: HAEMARTHROSIS
     Route: 042
     Dates: start: 20121128
  11. CROSS EIGHT M [Concomitant]
     Indication: HAEMARTHROSIS
     Dosage: 100-2000 IU PER DAY
     Route: 042
     Dates: start: 20110701, end: 20111101
  12. CROSS EIGHT M [Concomitant]
     Indication: HAEMARTHROSIS
     Route: 042
     Dates: start: 20121027, end: 20121127
  13. CROSS EIGHT M [Concomitant]
     Indication: HAEMARTHROSIS
     Route: 042
     Dates: start: 20111102, end: 20111107
  14. CROSS EIGHT M [Concomitant]
     Indication: HAEMARTHROSIS
     Route: 042
     Dates: start: 20111108, end: 20111115
  15. CROSS EIGHT M [Concomitant]
     Indication: FACTOR VIII DEFICIENCY
     Route: 042
     Dates: start: 20111116, end: 20111130
  16. CROSS EIGHT M [Concomitant]
     Indication: FACTOR VIII DEFICIENCY
     Route: 042
     Dates: start: 20121128
  17. CROSS EIGHT M [Concomitant]
     Indication: FACTOR VIII DEFICIENCY
     Route: 042
     Dates: start: 20121027, end: 20121127
  18. CROSS EIGHT M [Concomitant]
     Indication: FACTOR VIII DEFICIENCY
     Route: 042
     Dates: start: 20100401, end: 20110630
  19. CROSS EIGHT M [Concomitant]
     Indication: FACTOR VIII DEFICIENCY
     Dosage: 100-2000 IU PER DAY
     Route: 042
     Dates: start: 20110701, end: 20111101
  20. CROSS EIGHT M [Concomitant]
     Indication: FACTOR VIII DEFICIENCY
     Route: 042
     Dates: start: 20120401, end: 20121026
  21. CROSS EIGHT M [Concomitant]
     Indication: FACTOR VIII DEFICIENCY
     Route: 042
     Dates: start: 20111108, end: 20111115
  22. CROSS EIGHT M [Concomitant]
     Indication: FACTOR VIII DEFICIENCY
     Route: 042
     Dates: start: 20111102, end: 20111107
  23. CROSS EIGHT M [Concomitant]
     Indication: FACTOR VIII DEFICIENCY
     Route: 042
     Dates: start: 20111201
  24. REFLEX (MIRTAZAPINE) [Concomitant]
     Indication: ADJUSTMENT DISORDER
     Route: 048
     Dates: start: 20110301, end: 20110315
  25. REFLEX (MIRTAZAPINE) [Concomitant]
     Indication: ADJUSTMENT DISORDER
     Route: 048
     Dates: start: 20110316
  26. REFLEX (MIRTAZAPINE) [Concomitant]
     Indication: DEPRESSION
     Route: 048
     Dates: start: 20110316
  27. REFLEX (MIRTAZAPINE) [Concomitant]
     Indication: DEPRESSION
     Route: 048
     Dates: start: 20110301, end: 20110315
  28. MILTAX [Concomitant]
     Indication: FACTOR VIII DEFICIENCY
     Route: 061
     Dates: start: 20100401, end: 20130331
  29. URSO [Concomitant]
     Indication: LIVER FUNCTION TEST ABNORMAL
     Route: 048
     Dates: start: 20100401
  30. LANDSEN [Concomitant]
     Indication: ADJUSTMENT DISORDER
     Route: 048
     Dates: start: 20110301, end: 20110405
  31. LANDSEN [Concomitant]
     Indication: ADJUSTMENT DISORDER
     Route: 048
     Dates: start: 20110406, end: 20121001
  32. LANDSEN [Concomitant]
     Indication: DEPRESSION
     Route: 048
     Dates: start: 20110406, end: 20121001
  33. LANDSEN [Concomitant]
     Indication: DEPRESSION
     Route: 048
     Dates: start: 20110301, end: 20110405

REACTIONS (7)
  - Adjustment disorder [Recovering/Resolving]
  - Haemarthrosis [Recovering/Resolving]
  - Splenic injury [Recovering/Resolving]
  - Fall [Unknown]
  - Liver function test abnormal [Not Recovered/Not Resolved]
  - Platelet count decreased [Not Recovered/Not Resolved]
  - Sensory disturbance [Not Recovered/Not Resolved]
